FAERS Safety Report 16488121 (Version 5)
Quarter: 2025Q3

REPORT INFORMATION
  Report Type: Spontaneous
  Country: EU (occurrence: EU)
  Receive Date: 20190627
  Receipt Date: 20250812
  Transmission Date: 20251021
  Serious: Yes (Disabling, Other)
  Sender: NOVARTIS
  Company Number: PHHY2019IT137745

PATIENT
  Age: 68 Year
  Sex: Male

DRUGS (14)
  1. CYCLOSPORINE [Interacting]
     Active Substance: CYCLOSPORINE
     Indication: Liver transplant
     Dosage: 50 MG, QD 50 MG/DAY PER OS (STARTED ABOUT IN 2004; FOR MANY YEARS AT HIGHER DOSAGES)
     Route: 048
     Dates: start: 2004
  2. CYCLOSPORINE [Interacting]
     Active Substance: CYCLOSPORINE
     Dosage: 50 MG, QD 50 MG/DAY PER OS (STARTED ABOUT IN 2004; FOR MANY YEARS AT HIGHER DOSAGES)
     Route: 048
  3. AMIODARONE [Interacting]
     Active Substance: AMIODARONE
     Indication: Atrial fibrillation
     Dosage: 200 MG, QD
     Route: 048
     Dates: start: 2017
  4. MYCOPHENOLATE MOFETIL [Suspect]
     Active Substance: MYCOPHENOLATE MOFETIL
     Indication: Product used for unknown indication
     Route: 065
  5. DOXAZOSIN [Suspect]
     Active Substance: DOXAZOSIN MESYLATE
     Indication: Product used for unknown indication
     Route: 065
  6. VALSARTAN [Suspect]
     Active Substance: VALSARTAN
     Indication: Product used for unknown indication
     Route: 065
  7. ASPIRIN [Suspect]
     Active Substance: ASPIRIN
     Indication: Product used for unknown indication
     Route: 065
  8. ALLOPURINOL [Suspect]
     Active Substance: ALLOPURINOL
     Indication: Product used for unknown indication
     Route: 065
  9. HYDROCHLOROTHIAZIDE [Suspect]
     Active Substance: HYDROCHLOROTHIAZIDE
     Indication: Product used for unknown indication
     Route: 065
  10. ASPIRIN [Concomitant]
     Active Substance: ASPIRIN
     Indication: Product used for unknown indication
     Route: 065
  11. ALLOPURINOL [Concomitant]
     Active Substance: ALLOPURINOL
     Indication: Product used for unknown indication
     Route: 065
  12. DOXAZOSIN [Concomitant]
     Active Substance: DOXAZOSIN MESYLATE
     Indication: Product used for unknown indication
     Route: 065
  13. MYCOPHENOLIC ACID [Concomitant]
     Active Substance: MYCOPHENOLIC ACID
     Indication: Product used for unknown indication
     Route: 065
  14. VALSARTAN AND HYDROCHLOROTHIAZIDE [Concomitant]
     Active Substance: HYDROCHLOROTHIAZIDE\VALSARTAN
     Indication: Product used for unknown indication
     Route: 065

REACTIONS (6)
  - Myopathy [Unknown]
  - Myopathy toxic [Not Recovered/Not Resolved]
  - Drug interaction [Unknown]
  - Gait disturbance [Unknown]
  - Fatigue [Unknown]
  - Muscular weakness [Unknown]
